FAERS Safety Report 6780442-X (Version None)
Quarter: 2010Q2

REPORT INFORMATION
  Report Type: 
  Country: None (occurrence: None)
  Receive Date: 20100620
  Receipt Date: 20100609
  Transmission Date: 20101027
  Serious: Yes (Other)
  Sender: FDA-Public Use
  Company Number: ZA-BRISTOL-MYERS SQUIBB COMPANY-15141682

PATIENT
  Age: 45 Year
  Sex: Male
  Weight: 98 kg

DRUGS (10)
  1. SAXAGLIPTIN [Suspect]
     Indication: TYPE 2 DIABETES MELLITUS
     Route: 048
     Dates: start: 20090924
  2. PLACEBO [Suspect]
     Indication: TYPE 2 DIABETES MELLITUS
  3. ACTRAPHANE [Suspect]
     Indication: TYPE 2 DIABETES MELLITUS
     Dosage: 1DF-32 UNIT NOS; 32 UNITS IN MORNING, 28 UNITS IN THE NIGHT.
     Route: 058
     Dates: start: 19980101
  4. SIMVASTATIN [Suspect]
     Dates: start: 20100301
  5. ADALAT [Concomitant]
     Dates: start: 20020101, end: 20091020
  6. COVERSYL [Concomitant]
     Dates: start: 20020101, end: 20091020
  7. AMLODIPINE [Concomitant]
     Dates: start: 20091021
  8. ATENOLOL [Concomitant]
     Dates: start: 20091021
  9. RIDAQ [Concomitant]
     Dates: start: 20091021
  10. PHARMAPRESS [Concomitant]
     Dates: start: 20091021

REACTIONS (2)
  - RENAL IMPAIRMENT [None]
  - RHABDOMYOLYSIS [None]
